FAERS Safety Report 6171506-2 (Version None)
Quarter: 2009Q2

REPORT INFORMATION
  Report Type: 
  Country: None (occurrence: None)
  Receive Date: 20090429
  Receipt Date: 20090427
  Transmission Date: 20091009
  Serious: Yes (Death)
  Sender: FDA-Public Use
  Company Number: GB-WYE-G03580609

PATIENT
  Sex: Male

DRUGS (1)
  1. SIROLIMUS [Suspect]
     Indication: RENAL TRANSPLANT
     Dosage: UNKNOWN

REACTIONS (1)
  - DEATH [None]
